FAERS Safety Report 20455853 (Version 1)
Quarter: 2022Q1

REPORT INFORMATION
  Report Type: Spontaneous
  Country: NL (occurrence: None)
  Receive Date: 20220210
  Receipt Date: 20220210
  Transmission Date: 20220423
  Serious: Yes (Hospitalization, Other)
  Sender: FDA-Public Use
  Company Number: 2021A396634

PATIENT
  Age: 490 Month
  Sex: Male

DRUGS (3)
  1. VAXZEVRIA [Suspect]
     Active Substance: AZD-1222
     Route: 030
  2. SYMBICORT [Suspect]
     Active Substance: BUDESONIDE\FORMOTEROL FUMARATE DIHYDRATE
     Indication: Asthma
     Dosage: 160/4.5 UG, PRESCRIBED 2X IN THE MORNING AND 2X IN THE EVENING, BUT PATIENT USES WHEN NECESSARY A...
     Route: 055
     Dates: start: 202010
  3. PULMICORT TURBUHALER [Suspect]
     Active Substance: BUDESONIDE
     Indication: Asthma
     Dosage: 200.0MG UNKNOWN
     Route: 055
     Dates: start: 202010

REACTIONS (6)
  - Atrial fibrillation [Recovering/Resolving]
  - Blood pressure increased [Recovered/Resolved with Sequelae]
  - Palpitations [Recovered/Resolved with Sequelae]
  - Pyrexia [Recovered/Resolved]
  - Fatigue [Recovered/Resolved]
  - Intentional product misuse [Recovered/Resolved with Sequelae]

NARRATIVE: CASE EVENT DATE: 20201001
